FAERS Safety Report 5793065-6 (Version None)
Quarter: 2008Q2

REPORT INFORMATION
  Report Type: 
  Country: None (occurrence: None)
  Receive Date: 20080627
  Receipt Date: 20080612
  Transmission Date: 20081010
  Serious: Yes (Other)
  Sender: FDA-Public Use
  Company Number: PHBS2007DK21532

PATIENT
  Sex: Male

DRUGS (4)
  1. TEGRETOL [Suspect]
     Indication: EPILEPSY
     Dosage: 200 MG, QD
     Route: 048
     Dates: start: 20070321, end: 20070626
  2. MOTILIUM [Concomitant]
     Dosage: 10 MG, TID
  3. EMPERAL [Concomitant]
     Indication: NAUSEA
  4. BROMAM [Concomitant]
     Indication: NAUSEA
     Route: 048

REACTIONS (7)
  - BLISTER [None]
  - EPHELIDES [None]
  - PHOTOSENSITIVITY REACTION [None]
  - RASH [None]
  - SUNBURN [None]
  - SWELLING FACE [None]
  - WOUND [None]
